FAERS Safety Report 5786174-9 (Version None)
Quarter: 2008Q2

REPORT INFORMATION
  Report Type: 
  Country: None (occurrence: None)
  Receive Date: 20080624
  Receipt Date: 20080618
  Transmission Date: 20081010
  Serious: Yes (Other)
  Sender: FDA-Public Use
  Company Number: B0360559A

PATIENT
  Sex: Male

DRUGS (7)
  1. PAROXETINE HCL [Suspect]
     Route: 065
     Dates: start: 20001020, end: 20040911
  2. DOTHIEPIN HYDROCHLORIDE [Concomitant]
     Dates: start: 20040207
  3. REBOXETINE [Concomitant]
     Dates: start: 20040521
  4. PROZAC [Concomitant]
     Dates: start: 20040827
  5. DIAZEPAM [Concomitant]
  6. LORMETAZEPAM [Concomitant]
  7. LORAZEPAM [Concomitant]

REACTIONS (48)
  - ABDOMINAL DISTENSION [None]
  - ABNORMAL DREAMS [None]
  - ACNE [None]
  - AGGRESSION [None]
  - AGITATION [None]
  - AKATHISIA [None]
  - ANXIETY [None]
  - COGNITIVE DISORDER [None]
  - CONSTIPATION [None]
  - COORDINATION ABNORMAL [None]
  - DEPERSONALISATION [None]
  - DIARRHOEA [None]
  - DISTURBANCE IN ATTENTION [None]
  - DIZZINESS [None]
  - DRUG DEPENDENCE [None]
  - DRUG INEFFECTIVE [None]
  - DRUG WITHDRAWAL SYNDROME [None]
  - DRY MOUTH [None]
  - DYSSOMNIA [None]
  - ENERGY INCREASED [None]
  - EYE PAIN [None]
  - FLIGHT OF IDEAS [None]
  - FOOD CRAVING [None]
  - FUNGAL INFECTION [None]
  - GAIT DISTURBANCE [None]
  - HEADACHE [None]
  - HOSTILITY [None]
  - HYPERHIDROSIS [None]
  - HYPERSOMNIA [None]
  - ILL-DEFINED DISORDER [None]
  - IMPULSIVE BEHAVIOUR [None]
  - INSOMNIA [None]
  - INTENTIONAL SELF-INJURY [None]
  - IRRITABILITY [None]
  - LETHARGY [None]
  - MEMORY IMPAIRMENT [None]
  - MIGRAINE [None]
  - MOOD ALTERED [None]
  - MUSCULOSKELETAL PAIN [None]
  - NECK PAIN [None]
  - PANIC ATTACK [None]
  - PANIC REACTION [None]
  - PARAESTHESIA [None]
  - PARANOIA [None]
  - PERSONALITY CHANGE [None]
  - SUICIDAL IDEATION [None]
  - THINKING ABNORMAL [None]
  - WEIGHT DECREASED [None]
